FAERS Safety Report 21240782 (Version 1)
Quarter: 2022Q3

REPORT INFORMATION
  Report Type: Spontaneous
  Country: US (occurrence: US)
  Receive Date: 20220823
  Receipt Date: 20220823
  Transmission Date: 20221027
  Serious: No
  Sender: FDA-Public Use
  Company Number: US-drreddys-SPO/USA/22/0153406

PATIENT
  Age: 18 Year
  Sex: Female

DRUGS (1)
  1. ZENATANE [Suspect]
     Active Substance: ISOTRETINOIN
     Indication: Product used for unknown indication
     Dosage: RMA ISSUE DATE: 2 FEBRUARY 2022 01:24:47 PM, 28 FEBRUARY 2022 05:05:00 PM, 4 MAY 2022 04:49:13 PM AN

REACTIONS (1)
  - Treatment noncompliance [Unknown]
